FAERS Safety Report 10598491 (Version 2)
Quarter: 2015Q1

REPORT INFORMATION
  Report Type: Spontaneous
  Country: IT (occurrence: IT)
  Receive Date: 20141121
  Receipt Date: 20150127
  Transmission Date: 20150720
  Serious: Yes (Other)
  Sender: FDA-Public Use
  Company Number: IT-ABBVIE-14P-083-1311027-00

PATIENT
  Age: 3 Year
  Sex: Female
  Weight: 19 kg

DRUGS (2)
  1. KLACID [Suspect]
     Active Substance: CLARITHROMYCIN
     Indication: BRONCHITIS
     Dosage: FORM STRENGTH: 125 MG/5 ML
     Route: 048
     Dates: start: 20141031, end: 20141103
  2. BUDEXAN [Concomitant]
     Indication: BRONCHITIS
     Dosage: FORM STRENGTH: 0.5 MG/2 ML
     Route: 055
     Dates: start: 20141031, end: 20141110

REACTIONS (2)
  - Altered state of consciousness [Recovered/Resolved]
  - Apraxia [Recovered/Resolved]

NARRATIVE: CASE EVENT DATE: 20141102
